FAERS Safety Report 6088773-6 (Version None)
Quarter: 2009Q1

REPORT INFORMATION
  Report Type: 
  Country: None (occurrence: None)
  Receive Date: 20090224
  Receipt Date: 20081014
  Transmission Date: 20090719
  Serious: No
  Sender: FDA-Public Use
  Company Number: US-BAYER-200832966NA

PATIENT
  Sex: Male

DRUGS (2)
  1. ULTRAVIST 300 [Suspect]
     Indication: COMPUTERISED TOMOGRAM THORAX
     Dates: start: 20080828, end: 20080828
  2. GASTROGRAFIN [Concomitant]
     Indication: COMPUTERISED TOMOGRAM THORAX
     Route: 048
     Dates: start: 20080828, end: 20080828

REACTIONS (3)
  - HYPERTENSION [None]
  - PRURITUS [None]
  - URTICARIA [None]
